FAERS Safety Report 22288088 (Version 3)
Quarter: 2023Q2

REPORT INFORMATION
  Report Type: Spontaneous
  Country: US (occurrence: US)
  Receive Date: 20230505
  Receipt Date: 20230627
  Transmission Date: 20230721
  Serious: No
  Sender: FDA-Public Use
  Company Number: US-SA-SAC20230504000167

PATIENT
  Age: 55 Year
  Sex: Male
  Weight: 116.5 kg

DRUGS (2)
  1. DUPIXENT [Suspect]
     Active Substance: DUPILUMAB
     Indication: Illness
     Dosage: 300 MG, QOW
     Route: 058
  2. DUPIXENT [Suspect]
     Active Substance: DUPILUMAB
     Indication: Neurodermatitis

REACTIONS (10)
  - Limb discomfort [Unknown]
  - Pain [Not Recovered/Not Resolved]
  - Skin haemorrhage [Unknown]
  - Skin fissures [Unknown]
  - Fungal skin infection [Not Recovered/Not Resolved]
  - Emotional distress [Not Recovered/Not Resolved]
  - Stress [Not Recovered/Not Resolved]
  - Skin disorder [Not Recovered/Not Resolved]
  - Stent placement [Unknown]
  - Extra dose administered [Unknown]

NARRATIVE: CASE EVENT DATE: 20230101
